FAERS Safety Report 21358872 (Version 1)
Quarter: 2022Q3

REPORT INFORMATION
  Report Type: Spontaneous
  Country: GB (occurrence: GB)
  Receive Date: 20220921
  Receipt Date: 20220921
  Transmission Date: 20221027
  Serious: Yes (Life-Threatening, Hospitalization, Disabling)
  Sender: FDA-Public Use
  Company Number: None

PATIENT
  Age: 19 Year
  Sex: Female
  Weight: 51 kg

DRUGS (2)
  1. QUETIAPINE [Suspect]
     Active Substance: QUETIAPINE
     Indication: Borderline personality disorder
     Dosage: 100 MG
     Dates: end: 20220909
  2. VENLAFAXINE [Concomitant]
     Active Substance: VENLAFAXINE HYDROCHLORIDE
     Indication: Borderline personality disorder

REACTIONS (4)
  - Medication error [Unknown]
  - Suicidal ideation [Not Recovered/Not Resolved]
  - Hallucination [Unknown]
  - Intrusive thoughts [Recovering/Resolving]

NARRATIVE: CASE EVENT DATE: 20070101
